FAERS Safety Report 9892654 (Version 2)
Quarter: 2014Q1

REPORT INFORMATION
  Report Type: Spontaneous
  Country: US (occurrence: US)
  Receive Date: 20140212
  Receipt Date: 20140307
  Transmission Date: 20141002
  Serious: Yes (Other)
  Sender: FDA-Public Use
  Company Number: US-B.I. PHARMACEUTICALS,INC./RIDGEFIELD-2014-BI-05385BP

PATIENT
  Age: 64 Year
  Sex: Female

DRUGS (11)
  1. SPIRIVA [Suspect]
     Indication: CHRONIC OBSTRUCTIVE PULMONARY DISEASE
     Dosage: 18 MCG
     Route: 055
     Dates: start: 200912
  2. SPIRIVA [Suspect]
     Dosage: 18 MCG
     Route: 048
     Dates: start: 20140205, end: 20140205
  3. XOPENEX [Concomitant]
     Route: 055
  4. SINGULAIR [Concomitant]
     Route: 048
  5. MUCINEX [Concomitant]
     Route: 048
  6. REGLAN [Concomitant]
     Indication: NAUSEA
     Route: 048
  7. XANAX [Concomitant]
     Route: 048
  8. BENICAR/HCTZ [Concomitant]
     Indication: HYPERTENSION
     Route: 048
  9. MESALMINE ENEMA [Concomitant]
     Indication: COLITIS ULCERATIVE
     Route: 054
  10. ZANTAC [Concomitant]
     Dosage: 150 MG
     Route: 048
  11. MUPIROCIN [Concomitant]
     Indication: SINUS DISORDER
     Route: 045

REACTIONS (9)
  - Small cell lung cancer [Not Recovered/Not Resolved]
  - Incorrect route of drug administration [Recovered/Resolved]
  - Swelling face [Recovered/Resolved]
  - Amnesia [Not Recovered/Not Resolved]
  - Burn oesophageal [Recovered/Resolved]
  - Tumour invasion [Not Recovered/Not Resolved]
  - Colitis ulcerative [Not Recovered/Not Resolved]
  - Cystitis [Recovered/Resolved]
  - Incorrect route of drug administration [Recovered/Resolved]
